FAERS Safety Report 19570987 (Version 7)
Quarter: 2021Q3

REPORT INFORMATION
  Report Type: Report from Study
  Country: ES (occurrence: ES)
  Receive Date: 20210716
  Receipt Date: 20210910
  Transmission Date: 20211014
  Serious: Yes (Hospitalization)
  Sender: FDA-Public Use
  Company Number: ES-EISAI MEDICAL RESEARCH-EC-2021-096159

PATIENT
  Age: 71 Year
  Sex: Female
  Weight: 77.9 kg

DRUGS (22)
  1. SYMBICORT [Concomitant]
     Active Substance: BUDESONIDE\FORMOTEROL FUMARATE DIHYDRATE
     Dates: start: 20210406, end: 20210624
  2. CALCIUM [Concomitant]
     Active Substance: CALCIUM
     Dates: start: 20210406
  3. DIFLUCORTOLONE [Concomitant]
     Active Substance: DIFLUCORTOLONE
     Dates: start: 20210406, end: 20210624
  4. MST [MORPHINE SULFATE] [Concomitant]
     Active Substance: MORPHINE SULFATE
     Dates: start: 20210518, end: 20210706
  5. PRIMPERAN [Concomitant]
     Active Substance: METOCLOPRAMIDE HYDROCHLORIDE
     Dates: start: 20210625
  6. ALBUTEROL. [Concomitant]
     Active Substance: ALBUTEROL
     Dates: start: 20210406, end: 20210624
  7. ACETAMINOPHEN. [Concomitant]
     Active Substance: ACETAMINOPHEN
     Dates: start: 20210406, end: 20210707
  8. EUTIROX [Concomitant]
     Active Substance: LEVOTHYROXINE SODIUM
     Dates: start: 20210625
  9. PEMBROLIZUMAB. [Suspect]
     Active Substance: PEMBROLIZUMAB
     Indication: NON-SMALL CELL LUNG CANCER METASTATIC
     Route: 041
     Dates: start: 20210625, end: 20210625
  10. ENALAPRIL [Concomitant]
     Active Substance: ENALAPRIL
     Dates: start: 20210702, end: 20210815
  11. VENLAFAXINE HYDROCHLORIDE. [Concomitant]
     Active Substance: VENLAFAXINE HYDROCHLORIDE
     Dates: start: 20210406, end: 20210804
  12. MORPHINE [Concomitant]
     Active Substance: MORPHINE
     Dates: start: 20210406, end: 20210624
  13. LORAZEPAM. [Concomitant]
     Active Substance: LORAZEPAM
     Dates: start: 20210406, end: 20210725
  14. CHOLECALCIFEROL [Concomitant]
     Active Substance: CHOLECALCIFEROL
     Dates: start: 20210406
  15. LENVATINIB [Suspect]
     Active Substance: LENVATINIB
     Indication: NON-SMALL CELL LUNG CANCER METASTATIC
     Route: 048
     Dates: start: 20210625, end: 20210705
  16. LENVATINIB [Suspect]
     Active Substance: LENVATINIB
     Route: 048
     Dates: start: 20210726
  17. PREDNISONE. [Concomitant]
     Active Substance: PREDNISONE
     Dates: start: 20210622, end: 20210624
  18. PREDNISONE. [Concomitant]
     Active Substance: PREDNISONE
     Dates: start: 20210625, end: 20210630
  19. EBASTEL [Concomitant]
     Active Substance: EBASTINE
     Dates: start: 20210622, end: 20210707
  20. EBASTEL [Concomitant]
     Active Substance: EBASTINE
     Dates: start: 20210625
  21. OMEPRAZOLE. [Concomitant]
     Active Substance: OMEPRAZOLE
     Dates: start: 20210406
  22. MOVICOL [Concomitant]
     Active Substance: POLYETHYLENE GLYCOL 3350\POTASSIUM CHLORIDE\SODIUM BICARBONATE\SODIUM CHLORIDE
     Dates: start: 20210407

REACTIONS (1)
  - Encephalopathy [Recovered/Resolved]

NARRATIVE: CASE EVENT DATE: 20210706
